FAERS Safety Report 24853389 (Version 1)
Quarter: 2025Q1

REPORT INFORMATION
  Report Type: Spontaneous
  Country: FR (occurrence: FR)
  Receive Date: 20250117
  Receipt Date: 20250117
  Transmission Date: 20250409
  Serious: Yes (Life-Threatening, Other)
  Sender: CHEPLAPHARM
  Company Number: None

PATIENT
  Age: 52 Year
  Sex: Male
  Weight: 73 kg

DRUGS (10)
  1. CLONAZEPAM [Suspect]
     Active Substance: CLONAZEPAM
  2. FLUMAZENIL [Interacting]
     Active Substance: FLUMAZENIL
     Indication: Toxicity to various agents
     Route: 048
     Dates: start: 20241130, end: 20241130
  3. KEPPRA [Suspect]
     Active Substance: LEVETIRACETAM
  4. TRANXENE [Suspect]
     Active Substance: CLORAZEPATE DIPOTASSIUM
  5. BACLOFEN [Interacting]
     Active Substance: BACLOFEN
     Indication: Alcoholism
     Route: 048
     Dates: start: 20241130, end: 20241130
  6. ZOPICLONE [Interacting]
     Active Substance: ZOPICLONE
     Indication: Alcoholism
     Route: 048
     Dates: start: 20241130, end: 20241130
  7. TRESIBA [Concomitant]
     Active Substance: INSULIN DEGLUDEC
  8. NOVORAPID [Concomitant]
     Active Substance: INSULIN ASPART
  9. TAMSULOSIN [Concomitant]
     Active Substance: TAMSULOSIN
  10. ACETAMINOPHEN\OPIUM [Concomitant]
     Active Substance: ACETAMINOPHEN\OPIUM

REACTIONS (3)
  - Status epilepticus [Recovered/Resolved]
  - Pneumonitis aspiration [Recovered/Resolved]
  - Septic shock [Recovered/Resolved]

NARRATIVE: CASE EVENT DATE: 20241130
